FAERS Safety Report 9916055 (Version 1)
Quarter: 2014Q1

REPORT INFORMATION
  Report Type: Spontaneous
  Country: US (occurrence: None)
  Receive Date: 20140220
  Receipt Date: 20140220
  Transmission Date: 20141002
  Serious: No
  Sender: FDA-Public Use
  Company Number: None

PATIENT
  Sex: Male
  Weight: 115.9 kg

DRUGS (1)
  1. PREGABALIN [Suspect]
     Indication: PAIN
     Route: 048
     Dates: start: 20130410, end: 20130503

REACTIONS (5)
  - Delirium [None]
  - Mental status changes [None]
  - Confusional state [None]
  - Feeling abnormal [None]
  - Drug intolerance [None]
